FAERS Safety Report 9615053 (Version 2)
Quarter: 2013Q4

REPORT INFORMATION
  Report Type: Spontaneous
  Country: US (occurrence: US)
  Receive Date: 20131011
  Receipt Date: 20131129
  Transmission Date: 20140711
  Serious: No
  Sender: FDA-Public Use
  Company Number: US-PFIZER INC-2013290006

PATIENT
  Age: 48 Year
  Sex: Female
  Weight: 126.98 kg

DRUGS (2)
  1. LYRICA [Suspect]
     Indication: FIBROMYALGIA
     Dosage: 150 MG, 3X/DAY
     Route: 048
  2. MELOXICAM [Concomitant]
     Dosage: UNK

REACTIONS (2)
  - Drug effect incomplete [Not Recovered/Not Resolved]
  - Limb discomfort [Not Recovered/Not Resolved]
